FAERS Safety Report 8851283 (Version 1)
Quarter: 2012Q4

REPORT INFORMATION
  Report Type: 
  Country: US (occurrence: US)
  Receive Date: 20121019
  Receipt Date: 20121019
  Transmission Date: 20130627
  Serious: Yes (Hospitalization, Other)
  Sender: FDA-Public Use
  Company Number: US-TEVA-365229USA

PATIENT
  Age: 8 Year
  Sex: Male

DRUGS (2)
  1. CYPROHEPTADINE [Suspect]
     Indication: HEADACHE
     Route: 048
  2. CYPROHEPTADINE [Suspect]
     Indication: HEADACHE
     Route: 048

REACTIONS (1)
  - Drug withdrawal syndrome [Recovering/Resolving]
